FAERS Safety Report 6109226-2 (Version None)
Quarter: 2009Q1

REPORT INFORMATION
  Report Type: 
  Country: None (occurrence: None)
  Receive Date: 20090310
  Receipt Date: 20090227
  Transmission Date: 20090719
  Serious: Yes (Life-Threatening)
  Sender: FDA-Public Use
  Company Number: JP-WYE-H08405409

PATIENT
  Age: 80 Year

DRUGS (1)
  1. ZOSYN [Suspect]
     Indication: PNEUMONIA
     Route: 041
     Dates: start: 20090201, end: 20090201

REACTIONS (4)
  - BLOOD ALKALINE PHOSPHATASE INCREASED [None]
  - BLOOD BILIRUBIN INCREASED [None]
  - JAUNDICE [None]
  - LIVER DISORDER [None]
